FAERS Safety Report 13888416 (Version 1)
Quarter: 2017Q3

REPORT INFORMATION
  Report Type: Spontaneous
  Country: US (occurrence: US)
  Receive Date: 20170821
  Receipt Date: 20170821
  Transmission Date: 20171127
  Serious: No
  Sender: FDA-Public Use
  Company Number: US-B.I. PHARMACEUTICALS,INC./RIDGEFIELD-2017-BI-045260

PATIENT
  Sex: Female

DRUGS (1)
  1. MOBIC [Suspect]
     Active Substance: MELOXICAM
     Indication: SWELLING
     Route: 065

REACTIONS (1)
  - Drug ineffective [Unknown]
